FAERS Safety Report 10653943 (Version 2)
Quarter: 2015Q2

REPORT INFORMATION
  Report Type: Report from Study
  Country: US (occurrence: US)
  Receive Date: 20141216
  Receipt Date: 20150609
  Transmission Date: 20150821
  Serious: Yes (Other)
  Sender: FDA-Public Use
  Company Number: US-GILEAD-2014-0126933

PATIENT
  Age: 86 Year
  Sex: Female

DRUGS (2)
  1. BLOOD [Concomitant]
     Active Substance: WHOLE BLOOD
  2. AMBRISENTAN [Suspect]
     Active Substance: AMBRISENTAN
     Indication: PULMONARY ARTERIAL HYPERTENSION
     Dosage: 10 MG, QD
     Route: 065
     Dates: start: 20080321

REACTIONS (2)
  - Transfusion [Unknown]
  - Gastric disorder [Unknown]

NARRATIVE: CASE EVENT DATE: 201411
